FAERS Safety Report 5204342-1 (Version None)
Quarter: 2007Q1

REPORT INFORMATION
  Report Type: 
  Country: None (occurrence: None)
  Receive Date: 20070110
  Receipt Date: 20060222
  Transmission Date: 20070707
  Serious: No
  Sender: FDA-Public Use
  Company Number: US-BRISTOL-MYERS SQUIBB COMPANY-13292909

PATIENT
  Age: 52 Year
  Sex: Female
  Weight: 63 kg

DRUGS (4)
  1. ABILIFY [Suspect]
     Indication: BIPOLAR DISORDER
     Dosage: 8-FEB-2006 PATIENT INCREASED DOSE TO 7.5 MG/D -} 16-FEB-2006 PHSYICIAN INCREASED DOSE TO 10MG/D
     Dates: start: 20060201
  2. ABILIFY [Suspect]
     Indication: MANIA
     Dosage: 8-FEB-2006 PATIENT INCREASED DOSE TO 7.5 MG/D -} 16-FEB-2006 PHSYICIAN INCREASED DOSE TO 10MG/D
     Dates: start: 20060201
  3. LAMICTAL [Concomitant]
  4. AMBIEN [Concomitant]

REACTIONS (2)
  - DRUG INEFFECTIVE [None]
  - SOMNOLENCE [None]
